FAERS Safety Report 7898718-1 (Version None)
Quarter: 2011Q4

REPORT INFORMATION
  Report Type: 
  Country: None (occurrence: None)
  Receive Date: 20111107
  Receipt Date: 20110708
  Transmission Date: 20120403
  Serious: No
  Sender: FDA-Public Use
  Company Number: US-ABBOTT-11P-163-0838153-00

PATIENT
  Sex: Male
  Weight: 88.53 kg

DRUGS (3)
  1. TRICOR [Suspect]
     Indication: BLOOD CHOLESTEROL INCREASED
     Dosage: SAMPLE PACKAGE FROM MD OFFICE
     Route: 048
     Dates: start: 20110617
  2. ASPIRIN [Concomitant]
     Indication: PRODUCT USED FOR UNKNOWN INDICATION
     Dosage: 1/2 TAB DAILY
  3. LOTREL [Concomitant]
     Indication: HYPERTENSION

REACTIONS (3)
  - TINNITUS [None]
  - MYALGIA [None]
  - GINGIVAL BLEEDING [None]
